FAERS Safety Report 7650054-4 (Version None)
Quarter: 2011Q3

REPORT INFORMATION
  Report Type: 
  Country: None (occurrence: None)
  Receive Date: 20110802
  Receipt Date: 20110802
  Transmission Date: 20111222
  Serious: Yes (Other)
  Sender: FDA-Public Use
  Company Number: None

PATIENT
  Sex: Female
  Weight: 81.646 kg

DRUGS (1)
  1. VYVANSE [Suspect]
     Indication: ATTENTION DEFICIT/HYPERACTIVITY DISORDER
     Dosage: 1 CAPSULE
     Route: 048
     Dates: start: 20090901, end: 20110801

REACTIONS (5)
  - HYPOMANIA [None]
  - IMPULSIVE BEHAVIOUR [None]
  - MIDDLE INSOMNIA [None]
  - STRESS [None]
  - MEMORY IMPAIRMENT [None]
